FAERS Safety Report 5017986-7 (Version None)
Quarter: 2006Q2

REPORT INFORMATION
  Report Type: 
  Country: None (occurrence: None)
  Receive Date: 20060605
  Receipt Date: 20060529
  Transmission Date: 20061013
  Serious: Yes (Hospitalization)
  Sender: FDA-Public Use
  Company Number: JP-JPN-A200601761

PATIENT
  Age: 46 Year
  Sex: Male

DRUGS (4)
  1. PAXIL [Suspect]
     Indication: DEPRESSION
     Dosage: 10MG THREE TIMES PER DAY
     Route: 048
     Dates: start: 20060217, end: 20060513
  2. ELIETEN [Suspect]
     Indication: DRUG USE FOR UNKNOWN INDICATION
     Dosage: 15MG PER DAY
     Route: 048
  3. MEDEPOLIN [Concomitant]
     Indication: DRUG USE FOR UNKNOWN INDICATION
     Dosage: 1.2MG PER DAY
     Route: 048
  4. HIZULEN S [Concomitant]
     Indication: DRUG USE FOR UNKNOWN INDICATION
     Dosage: 1.5G PER DAY
     Route: 048

REACTIONS (5)
  - BRADYKINESIA [None]
  - DEPRESSION [None]
  - DYSPHAGIA [None]
  - MUSCULOSKELETAL STIFFNESS [None]
  - TREMOR [None]
